FAERS Safety Report 7711140-3 (Version None)
Quarter: 2011Q3

REPORT INFORMATION
  Report Type: 
  Country: None (occurrence: None)
  Receive Date: 20110826
  Receipt Date: 20110816
  Transmission Date: 20111222
  Serious: No
  Sender: FDA-Public Use
  Company Number: US-BIOGENIDEC-2011BI028718

PATIENT
  Sex: Female

DRUGS (1)
  1. TYSABRI [Suspect]
     Indication: MULTIPLE SCLEROSIS
     Route: 042
     Dates: start: 20090112

REACTIONS (8)
  - FALL [None]
  - ARTHRALGIA [None]
  - JOINT DISLOCATION [None]
  - ASTHENIA [None]
  - CONTUSION [None]
  - COGNITIVE DISORDER [None]
  - HERPES ZOSTER [None]
  - FATIGUE [None]
